FAERS Safety Report 4657135-8 (Version None)
Quarter: 2005Q2

REPORT INFORMATION
  Report Type: 
  Country: None (occurrence: None)
  Receive Date: 20050506
  Receipt Date: 20050425
  Transmission Date: 20051028
  Serious: Yes (Hospitalization, Other)
  Sender: FDA-Public Use
  Company Number: 2005-0008275

PATIENT
  Age: 48 Year
  Sex: Male
  Weight: 87.0906 kg

DRUGS (12)
  1. TRUVADA [Suspect]
     Indication: HIV INFECTION
     Dosage: 1 DOSAGE FORMS, 1 IN 1 D, ORAL
     Route: 048
     Dates: start: 20050127, end: 20050301
  2. KALETRA [Suspect]
     Indication: HIV INFECTION
     Dosage: 3 DOSAGE FORMS, 1 IN 12HR, ORAL
     Route: 048
     Dates: start: 20050127, end: 20050301
  3. TRAZODONE HCL [Concomitant]
  4. LEXAPRO [Concomitant]
  5. FLUCONAZOLE [Concomitant]
  6. ACYCLOVIR [Concomitant]
  7. ZITHROMAX [Concomitant]
  8. DAPSONE [Concomitant]
  9. HYDROCHLOROTHIAZIDE [Concomitant]
  10. LISINOPRIL [Concomitant]
  11. ATENOLOL [Concomitant]
  12. SIMVASTATIN [Concomitant]

REACTIONS (15)
  - BLOOD CHLORIDE INCREASED [None]
  - BLOOD LACTATE DEHYDROGENASE INCREASED [None]
  - BLOOD POTASSIUM INCREASED [None]
  - BODY TEMPERATURE INCREASED [None]
  - DECREASED APPETITE [None]
  - DEHYDRATION [None]
  - GLUCOSE URINE PRESENT [None]
  - HAEMOLYSIS [None]
  - HEADACHE [None]
  - HYPOVOLAEMIA [None]
  - MYOCARDIAL INFARCTION [None]
  - NAUSEA [None]
  - PROTEINURIA [None]
  - RENAL FAILURE [None]
  - THERAPY NON-RESPONDER [None]
